FAERS Safety Report 19361136 (Version 1)
Quarter: 2021Q2

REPORT INFORMATION
  Report Type: Report from Study
  Country: US (occurrence: US)
  Receive Date: 20210601
  Receipt Date: 20210601
  Transmission Date: 20210717
  Serious: Yes (Death)
  Sender: FDA-Public Use
  Company Number: US-PFIZER INC-2021611783

PATIENT
  Sex: Female

DRUGS (2)
  1. ALISERTIB [Suspect]
     Active Substance: ALISERTIB
     Indication: NEOPLASM
     Dosage: 30 MG, TWICE DAILY ON DAYS 1?3 AND 8?10 OF EACH 21?DAY TREATMENT CYCLE
     Route: 048
  2. IRINOTECAN HCL [Suspect]
     Active Substance: IRINOTECAN HYDROCHLORIDE
     Indication: NEOPLASM
     Dosage: 100 MG/M2 OVER 30 MIN ON DAYS 1 AND DAY 8 OF EACH 21?DAY (3?WEEK) CYCLE
     Route: 042

REACTIONS (1)
  - Cardiac arrest [Fatal]
